FAERS Safety Report 23270516 (Version 2)
Quarter: 2024Q1

REPORT INFORMATION
  Report Type: Spontaneous
  Country: NL (occurrence: NL)
  Receive Date: 20231207
  Receipt Date: 20240205
  Transmission Date: 20240409
  Serious: Yes (Death, Other)
  Sender: FDA-Public Use
  Company Number: NL-LRB-00931135

PATIENT
  Age: 47 Year
  Sex: Male
  Weight: 122 kg

DRUGS (6)
  1. CLOPIDOGREL [Suspect]
     Active Substance: CLOPIDOGREL BISULFATE
     Indication: Product used for unknown indication
     Dosage: 75 MILLIGRAM, ONCE A DAY
     Route: 065
     Dates: start: 20210204
  2. METFORMIN HYDROCHLORIDE [Suspect]
     Active Substance: METFORMIN HYDROCHLORIDE
     Indication: Type 2 diabetes mellitus
     Dosage: 1000 MILLIGRAM, 3 TIMES A DAY 3 INTO 1 TABLET
     Route: 065
     Dates: start: 20210607
  3. SIMVASTATIN [Suspect]
     Active Substance: SIMVASTATIN
     Indication: Type 2 diabetes mellitus
     Dosage: 40 MILLIGRAM, ONCE A DAY (1 PER DAY 1)
     Route: 065
     Dates: start: 20210101
  4. GLICLAZIDE [Suspect]
     Active Substance: GLICLAZIDE
     Indication: Type 2 diabetes mellitus
     Dosage: 30 MILLIGRAM, ONCE A DAY (1 X/ DAG )
     Route: 065
     Dates: start: 20210126
  5. OMEPRAZOLE [Suspect]
     Active Substance: OMEPRAZOLE
     Indication: Abdominal discomfort
     Dosage: 1 PER DAY 1
     Route: 065
     Dates: start: 20160101
  6. SAXENDA [Suspect]
     Active Substance: LIRAGLUTIDE
     Indication: Obesity
     Dosage: 1 DOSAGE FORM, EVERY WEEK (1 X PER DAG WISSELDE ZIJN DOSERING )
     Route: 065
     Dates: start: 20221013

REACTIONS (2)
  - Death [Fatal]
  - Sudden death [Fatal]

NARRATIVE: CASE EVENT DATE: 20231025
